FAERS Safety Report 13440853 (Version 4)
Quarter: 2017Q3

REPORT INFORMATION
  Report Type: Report from Study
  Country: None (occurrence: US)
  Receive Date: 20170413
  Receipt Date: 20170814
  Transmission Date: 20171127
  Serious: Yes (Hospitalization, Other)
  Sender: FDA-Public Use
  Company Number: US-ABBVIE-17K-163-1938989-00

PATIENT
  Age: 76 Year
  Sex: Female

DRUGS (2)
  1. FLAGYL [Concomitant]
     Active Substance: METRONIDAZOLE\METRONIDAZOLE HYDROCHLORIDE
     Indication: PRODUCT USED FOR UNKNOWN INDICATION
  2. HUMIRA [Suspect]
     Active Substance: ADALIMUMAB
     Indication: CROHN^S DISEASE
     Route: 058

REACTIONS (9)
  - Fall [Recovering/Resolving]
  - Foaming at mouth [Unknown]
  - Pneumonia [Recovering/Resolving]
  - Head injury [Recovering/Resolving]
  - Device allergy [Recovering/Resolving]
  - Influenza [Unknown]
  - Transient ischaemic attack [Recovered/Resolved]
  - Food poisoning [Recovering/Resolving]
  - Dermatitis allergic [Recovering/Resolving]

NARRATIVE: CASE EVENT DATE: 201612
